FAERS Safety Report 7945314-3 (Version None)
Quarter: 2011Q4

REPORT INFORMATION
  Report Type: 
  Country: None (occurrence: None)
  Receive Date: 20111129
  Receipt Date: 20110127
  Transmission Date: 20120403
  Serious: No
  Sender: FDA-Public Use
  Company Number: US-GLAXOSMITHKLINE-A0909847A

PATIENT
  Age: 25 Year
  Sex: Male

DRUGS (3)
  1. KLONOPIN [Concomitant]
  2. CITALOPRAM [Concomitant]
  3. WELLBUTRIN SR [Suspect]
     Indication: SOCIAL PHOBIA
     Dosage: 150MG TWICE PER DAY
     Route: 048
     Dates: start: 20100101, end: 20110101

REACTIONS (5)
  - TREMOR [None]
  - HYPERHIDROSIS [None]
  - DISTURBANCE IN ATTENTION [None]
  - TACHYPHRENIA [None]
  - DIARRHOEA [None]
